FAERS Safety Report 10474655 (Version 1)
Quarter: 2014Q3

REPORT INFORMATION
  Report Type: Spontaneous
  Country: US (occurrence: US)
  Receive Date: 20140925
  Receipt Date: 20140925
  Transmission Date: 20150326
  Serious: No
  Sender: FDA-Public Use
  Company Number: US-009507513-1409USA005671

PATIENT
  Sex: Male

DRUGS (4)
  1. YERVOY [Concomitant]
     Active Substance: IPILIMUMAB
     Dosage: UNK
  2. ZELBORAF [Concomitant]
     Active Substance: VEMURAFENIB
     Dosage: UNK
  3. KEYTRUDA [Suspect]
     Active Substance: PEMBROLIZUMAB
     Dosage: UNK
  4. TEMODAR [Suspect]
     Active Substance: TEMOZOLOMIDE
     Indication: METASTATIC MALIGNANT MELANOMA
     Dosage: UNK

REACTIONS (2)
  - Unevaluable event [Unknown]
  - Disease progression [Unknown]
